FAERS Safety Report 7874905-3 (Version None)
Quarter: 2011Q4

REPORT INFORMATION
  Report Type: 
  Country: None (occurrence: None)
  Receive Date: 20111031
  Receipt Date: 20111019
  Transmission Date: 20120403
  Serious: Yes (Other)
  Sender: FDA-Public Use
  Company Number: CA-JNJFOC-20111010697

PATIENT
  Sex: Male
  Weight: 81 kg

DRUGS (8)
  1. REMICADE [Suspect]
     Indication: UNEVALUABLE EVENT
     Route: 042
     Dates: start: 20110718
  2. COLACE [Concomitant]
  3. REMICADE [Suspect]
     Route: 042
     Dates: start: 20110829
  4. QUESTRAN [Concomitant]
     Dosage: 1 POUCH
  5. DILAUDID [Concomitant]
     Dosage: 1-2 TABLETS Q6H PRN
  6. VITAMIN B-12 [Concomitant]
     Dosage: IM(?) 9 MONTHS
  7. IMURAN [Concomitant]
  8. CELEBREX [Concomitant]
     Dosage: 1 TABLET

REACTIONS (1)
  - ANAL CANCER [None]
